FAERS Safety Report 23789793 (Version 1)
Quarter: 2024Q2

REPORT INFORMATION
  Report Type: Spontaneous
  Country: US (occurrence: None)
  Receive Date: 20240426
  Receipt Date: 20240426
  Transmission Date: 20240715
  Serious: No
  Sender: FDA-Public Use
  Company Number: None

PATIENT
  Age: 81 Year
  Sex: Male
  Weight: 161 kg

DRUGS (2)
  1. EMPAGLIFLOZIN [Suspect]
     Active Substance: EMPAGLIFLOZIN
     Indication: Cardiac failure congestive
     Dosage: 12.5 MG EVERY DAY PO
     Route: 048
     Dates: start: 20230505, end: 20230509
  2. ASPIRIN [Suspect]
     Active Substance: ASPIRIN
     Indication: Cardiac device replacement
     Dosage: FREQUENCY : DAILY;81 MG EVERY DAY PO
     Route: 048
     Dates: start: 20221021

REACTIONS (2)
  - Rectal haemorrhage [None]
  - Haemoglobin decreased [None]

NARRATIVE: CASE EVENT DATE: 20230509
